FAERS Safety Report 4600873-3 (Version None)
Quarter: 2005Q1

REPORT INFORMATION
  Report Type: 
  Country: None (occurrence: None)
  Receive Date: 20050127
  Receipt Date: 20041101
  Transmission Date: 20050727
  Serious: No
  Sender: FDA-Public Use
  Company Number: USA041182869

PATIENT
  Age: 29 Year
  Sex: Male
  Weight: 85 kg

DRUGS (2)
  1. STRATTERA [Suspect]
     Indication: THINKING ABNORMAL
     Dosage: 40 MG DAY
     Dates: start: 20041018
  2. SEROQUEL [Concomitant]

REACTIONS (2)
  - AMNESIA [None]
  - CONFUSIONAL STATE [None]
